FAERS Safety Report 4338244-X (Version None)
Quarter: 2004Q2

REPORT INFORMATION
  Report Type: 
  Country: None (occurrence: None)
  Receive Date: 20040409
  Receipt Date: 20040401
  Transmission Date: 20050107
  Serious: Yes (Hospitalization)
  Sender: FDA-Public Use
  Company Number: 2004SE01598

PATIENT
  Sex: Male

DRUGS (7)
  1. BLOPRESS [Suspect]
     Dosage: 16 MG DAILY PO
     Route: 048
     Dates: start: 20010913, end: 20040216
  2. OMEPRAZOLE [Suspect]
     Dosage: 20 MG DAILY PO
     Route: 048
     Dates: start: 20010912, end: 20040216
  3. XATRAL [Suspect]
     Dosage: 10 MG DAILY PO
     Route: 048
     Dates: start: 20020226, end: 20040216
  4. SEREVENT [Suspect]
     Dosage: 50 UG DAILY IH
     Dates: start: 20000412, end: 20040220
  5. EUTIROX [Suspect]
     Dosage: 100 UG DAILY PO
     Route: 048
     Dates: start: 20000207, end: 20040220
  6. MODURETIC 5-50 [Suspect]
     Dosage: 2.5 MG DAILY PO
     Route: 048
     Dates: start: 20000912, end: 20040220
  7. CLENILEXX [Suspect]

REACTIONS (2)
  - ERYTHEMA [None]
  - RED BLOOD CELL SEDIMENTATION RATE INCREASED [None]
